FAERS Safety Report 6989881-5 (Version None)
Quarter: 2010Q3

REPORT INFORMATION
  Report Type: 
  Country: None (occurrence: None)
  Receive Date: 20100916
  Receipt Date: 20100311
  Transmission Date: 20110219
  Serious: Yes (Hospitalization)
  Sender: FDA-Public Use
  Company Number: AU-PFIZER INC-2010031226

PATIENT
  Sex: Female

DRUGS (1)
  1. LYRICA [Suspect]
     Indication: HERPES ZOSTER
     Dosage: ONE CAPSULE

REACTIONS (3)
  - DIZZINESS [None]
  - HYPERSENSITIVITY [None]
  - HYPERTENSION [None]
